FAERS Safety Report 17574036 (Version 3)
Quarter: 2020Q1

REPORT INFORMATION
  Report Type: Spontaneous
  Country: CN (occurrence: CN)
  Receive Date: 20200323
  Receipt Date: 20200327
  Transmission Date: 20200409
  Serious: Yes (Death, Hospitalization, Other)
  Sender: FDA-Public Use
  Company Number: CN-OTSUKA-2020_007869

PATIENT
  Age: 32 Year
  Sex: Female
  Weight: 40 kg

DRUGS (5)
  1. DACOGEN [Suspect]
     Active Substance: DECITABINE
     Indication: ACUTE LEUKAEMIA
     Dosage: 1 DOSE (26 MG)
     Route: 041
     Dates: start: 20190325, end: 20190329
  2. CYTOSAR [Suspect]
     Active Substance: CYTARABINE
     Indication: NEOPLASM PROPHYLAXIS
     Dosage: 1 DOSE, 0.5 DAYS (0.025 GM,1 IN 12 HR)
     Route: 041
     Dates: start: 20190330, end: 20190412
  3. SODIUM CHLORIDE. [Concomitant]
     Active Substance: SODIUM CHLORIDE
     Dosage: 1 DOSES, 1 DAY (250 ML)
     Route: 041
     Dates: start: 20190330, end: 20190402
  4. SODIUM CHLORIDE. [Concomitant]
     Active Substance: SODIUM CHLORIDE
     Indication: PRODUCT USED FOR UNKNOWN INDICATION
     Dosage: 1 DOSES, 1 DAY (100 ML)
     Route: 041
     Dates: start: 20190325, end: 20190329
  5. ACLARUBICIN HYDROCHLORIDE [Suspect]
     Active Substance: ACLARUBICIN HYDROCHLORIDE
     Indication: CHEMOTHERAPY
     Dosage: 1 DOSE (10 MG)
     Route: 041
     Dates: start: 20190330, end: 20190402

REACTIONS (9)
  - Acute graft versus host disease [Unknown]
  - Acute myeloid leukaemia recurrent [Unknown]
  - Gingivitis [Unknown]
  - Bone marrow failure [Not Recovered/Not Resolved]
  - Gastrointestinal infection [Unknown]
  - Respiratory failure [Fatal]
  - Pulmonary haemorrhage [Fatal]
  - Septic shock [Fatal]
  - Pneumonia [Fatal]

NARRATIVE: CASE EVENT DATE: 20190412
